FAERS Safety Report 5333155-5 (Version None)
Quarter: 2007Q2

REPORT INFORMATION
  Report Type: 
  Country: None (occurrence: None)
  Receive Date: 20070524
  Receipt Date: 20070514
  Transmission Date: 20071010
  Serious: Yes (Hospitalization, Other)
  Sender: FDA-Public Use
  Company Number: PHHO2006US19593

PATIENT
  Age: 70 Year
  Sex: Female

DRUGS (3)
  1. LETROZOLE [Suspect]
     Indication: BREAST CANCER METASTATIC
     Dosage: 2.5 MG, QD
     Route: 048
     Dates: start: 20040617
  2. TRIAMTERENE [Concomitant]
  3. HYDROCHLOROTHIAZIDE [Concomitant]

REACTIONS (14)
  - ABASIA [None]
  - ASTHENIA [None]
  - BLOOD POTASSIUM DECREASED [None]
  - BLOOD SODIUM DECREASED [None]
  - BONE DISORDER [None]
  - CONCOMITANT DISEASE PROGRESSION [None]
  - DIZZINESS [None]
  - FALL [None]
  - FATIGUE [None]
  - HYPONATRAEMIA [None]
  - METASTASES TO LUNG [None]
  - MUSCULOSKELETAL PAIN [None]
  - POLYDIPSIA [None]
  - POLYURIA [None]
